FAERS Safety Report 14584222 (Version 1)
Quarter: 2018Q1

REPORT INFORMATION
  Report Type: Spontaneous
  Country: US (occurrence: US)
  Receive Date: 20180228
  Receipt Date: 20180228
  Transmission Date: 20180509
  Serious: No
  Sender: FDA-Public Use
  Company Number: US-IRONWOOD PHARMACEUTICALS, INC.-IRWD2017004652

PATIENT
  Sex: Male

DRUGS (2)
  1. ZURAMPIC [Suspect]
     Active Substance: LESINURAD
     Indication: GOUT
     Dosage: 200 MG, DAILY (QD)
     Route: 048
  2. ALLOPURINOL. [Concomitant]
     Active Substance: ALLOPURINOL
     Indication: GOUT
     Dosage: UNK
     Route: 065

REACTIONS (1)
  - Back pain [Unknown]
